FAERS Safety Report 20809539 (Version 1)
Quarter: 2022Q2

REPORT INFORMATION
  Report Type: Spontaneous
  Country: US (occurrence: US)
  Receive Date: 20220510
  Receipt Date: 20220510
  Transmission Date: 20220721
  Serious: No
  Sender: FDA-Public Use
  Company Number: US-TAKEDA-2022TUS031134

PATIENT
  Sex: Female
  Weight: 111 kg

DRUGS (1)
  1. DEXILANT [Suspect]
     Active Substance: DEXLANSOPRAZOLE
     Indication: Gastrooesophageal reflux disease
     Dosage: 60 MILLIGRAM, BID
     Route: 065

REACTIONS (3)
  - Incorrect product administration duration [Unknown]
  - Overdose [Unknown]
  - No adverse event [Unknown]
